FAERS Safety Report 5752661-2 (Version None)
Quarter: 2008Q2

REPORT INFORMATION
  Report Type: 
  Country: None (occurrence: None)
  Receive Date: 20080529
  Receipt Date: 20080522
  Transmission Date: 20081010
  Serious: Yes (Death)
  Sender: FDA-Public Use
  Company Number: JP-SANOFI-SYNTHELABO-F01200800356

PATIENT
  Sex: Female
  Weight: 30 kg

DRUGS (3)
  1. CLOPIDOGREL [Suspect]
     Indication: TRANSIENT ISCHAEMIC ATTACK
     Route: 048
     Dates: start: 20070905, end: 20071215
  2. VASOLAN [Concomitant]
     Dosage: 40 MG
     Route: 048
     Dates: start: 20070903, end: 20071215
  3. ASPIRIN [Concomitant]
     Dosage: 100 MG
     Route: 048
     Dates: start: 20070903, end: 20071215

REACTIONS (1)
  - MECHANICAL ILEUS [None]
